FAERS Safety Report 17736920 (Version 1)
Quarter: 2020Q2

REPORT INFORMATION
  Report Type: Spontaneous
  Country: GB (occurrence: GB)
  Receive Date: 20200502
  Receipt Date: 20200502
  Transmission Date: 20200714
  Serious: Yes (Other)
  Sender: FDA-Public Use
  Company Number: GB-TEVA-2020-GB-1228630

PATIENT
  Age: 75 Year
  Sex: Female
  Weight: 89 kg

DRUGS (12)
  1. MAXALT [Concomitant]
     Active Substance: RIZATRIPTAN BENZOATE
     Dosage: AS DIRECTED, 1 DOSAGE FORMS
     Dates: start: 20200320
  2. RELETRANS [Concomitant]
     Active Substance: BUPRENORPHINE
     Dosage: APPLY, 1 DOSAGE FORMS
     Dates: start: 20200219, end: 20200316
  3. SEVODYNE [Concomitant]
     Dosage: APPLY, 1 DOSAGE FORMS
     Dates: start: 20200310, end: 20200317
  4. ATORVASTATIN [Concomitant]
     Active Substance: ATORVASTATIN
     Dosage: 1 DOSAGE FORMS DAILY; AT NIGHT
     Dates: start: 20200219
  5. OMEPRAZOLE. [Concomitant]
     Active Substance: OMEPRAZOLE
     Dosage: 1 DOSAGE FORMS
     Dates: start: 20200217
  6. METFORMIN [Concomitant]
     Active Substance: METFORMIN HYDROCHLORIDE
     Dosage: 4 DOSAGE FORMS
     Dates: start: 20200217
  7. BUPRENORPHINE. [Concomitant]
     Active Substance: BUPRENORPHINE
     Dosage: APPLY, 1 DOSAGE FORMS
     Dates: start: 20200214, end: 20200313
  8. FLUOXETINE [Concomitant]
     Active Substance: FLUOXETINE HYDROCHLORIDE
     Dosage: 1 DOSAGE FORM
     Dates: start: 20200217
  9. GABAPENTIN. [Suspect]
     Active Substance: GABAPENTIN
     Dosage: 300 MG, TAKE ONE A DAY FOR 3 DAYS THEN TWICE DAILY FOR
     Dates: start: 20200316
  10. QVAR [Concomitant]
     Active Substance: BECLOMETHASONE DIPROPIONATE
     Dosage: 2 DOSAGE FORMS
     Route: 055
     Dates: start: 20200226
  11. RIZATRIPTAN. [Concomitant]
     Active Substance: RIZATRIPTAN
     Dosage: AS DIRECTED, 1 DOSAGE FORMS
     Dates: start: 20200116, end: 20200213
  12. SALBUTAMOL [Concomitant]
     Active Substance: ALBUTEROL
     Dosage: 2 DOSAGE FORMS
     Route: 055
     Dates: start: 20200217, end: 20200316

REACTIONS (1)
  - Epigastric discomfort [Recovering/Resolving]

NARRATIVE: CASE EVENT DATE: 20200330
